FAERS Safety Report 10241600 (Version 2)
Quarter: 2014Q3

REPORT INFORMATION
  Report Type: Spontaneous
  Country: US (occurrence: None)
  Receive Date: 20140613
  Receipt Date: 20140811
  Transmission Date: 20150326
  Serious: Yes (Death)
  Sender: FDA-Public Use
  Company Number: UNT-2014-001512

PATIENT
  Age: 67 Year
  Sex: Female
  Weight: 49.9 kg

DRUGS (3)
  1. TRACLEER [Concomitant]
     Active Substance: BOSENTAN\BOSENTAN MONOHYDRATE
  2. COUMADIN [Concomitant]
     Active Substance: WARFARIN SODIUM
  3. TYVASO [Suspect]
     Active Substance: TREPROSTINIL
     Indication: PULMONARY ARTERIAL HYPERTENSION
     Dosage: 18 TO 54 MCG, QID, INHALATION
     Route: 055
     Dates: start: 20110518, end: 2014

REACTIONS (3)
  - Death [None]
  - Terminal state [None]
  - Pulmonary arterial hypertension [None]

NARRATIVE: CASE EVENT DATE: 20140527
